FAERS Safety Report 5332238-3 (Version None)
Quarter: 2007Q2

REPORT INFORMATION
  Report Type: 
  Country: None (occurrence: None)
  Receive Date: 20070523
  Receipt Date: 20070517
  Transmission Date: 20071010
  Serious: Yes (Hospitalization)
  Sender: FDA-Public Use
  Company Number: JP-ASTRAZENECA-2007AP02319

PATIENT
  Age: 25744 Day
  Sex: Female
  Weight: 48 kg

DRUGS (11)
  1. CRESTOR [Suspect]
     Indication: HYPERLIPIDAEMIA
     Route: 048
     Dates: start: 20070217, end: 20070410
  2. AMOXAN [Suspect]
     Indication: DEPRESSION
     Route: 048
     Dates: start: 20060901, end: 20070416
  3. RIVOTRIL [Suspect]
     Indication: DEPRESSION
     Route: 048
     Dates: start: 20060901, end: 20070416
  4. DOGMATYL [Suspect]
     Indication: DEPRESSION
     Route: 048
     Dates: start: 20060901, end: 20070416
  5. NU-LOTAN [Concomitant]
     Indication: HYPERTENSION
     Route: 048
     Dates: start: 20070217
  6. SEDEKOPAN [Concomitant]
     Indication: INSOMNIA
     Route: 048
     Dates: start: 20070217, end: 20070416
  7. SEDEKOPAN [Concomitant]
     Indication: ANXIETY
     Route: 048
     Dates: start: 20070217, end: 20070416
  8. DEPAS [Concomitant]
     Route: 048
     Dates: start: 20060901, end: 20070416
  9. EBRANTIL [Concomitant]
     Route: 048
     Dates: start: 20070301, end: 20070416
  10. MEVALOTIN [Concomitant]
  11. LIPITOR [Concomitant]
     Dates: start: 20050606, end: 20060519

REACTIONS (2)
  - MYOPATHY [None]
  - PARKINSONISM [None]
